FAERS Safety Report 9554154 (Version 1)
Quarter: 2013Q3

REPORT INFORMATION
  Report Type: Spontaneous
  Country: SE (occurrence: SE)
  Receive Date: 20130925
  Receipt Date: 20130925
  Transmission Date: 20140515
  Serious: Yes (Other)
  Sender: FDA-Public Use
  Company Number: SE-TEVA-361880ISR

PATIENT
  Age: 36 Year
  Sex: Female

DRUGS (3)
  1. MODIODAL 40 MG [Suspect]
     Route: 048
     Dates: start: 20120301, end: 20120314
  2. FOLACIN 5 MG [Concomitant]
  3. ZOPIKLON MYLAN [Concomitant]

REACTIONS (3)
  - Eosinophilia [Recovered/Resolved]
  - Transaminases increased [Recovered/Resolved]
  - Hepatitis toxic [Recovered/Resolved]
